FAERS Safety Report 5455180-6 (Version None)
Quarter: 2007Q3

REPORT INFORMATION
  Report Type: 
  Country: None (occurrence: None)
  Receive Date: 20070914
  Receipt Date: 20070905
  Transmission Date: 20080115
  Serious: Yes (Hospitalization, Other)
  Sender: FDA-Public Use
  Company Number: 2007SP014233

PATIENT
  Age: 60 Year
  Sex: Male

DRUGS (5)
  1. PEG-INTRON [Suspect]
     Indication: HEPATITIS C
     Dosage: 100 MCG;QW;SC
     Route: 058
     Dates: start: 20070104, end: 20070614
  2. REBETOL [Suspect]
     Indication: HEPATITIS C
     Dosage: 800 MG;QD;PO; 600 MG;QD;PO
     Route: 048
     Dates: start: 20070104, end: 20070509
  3. REBETOL [Suspect]
     Indication: HEPATITIS C
     Dosage: 800 MG;QD;PO; 600 MG;QD;PO
     Route: 048
     Dates: start: 20070510, end: 20070621
  4. PROMAC D [Concomitant]
  5. JUVELA N [Concomitant]

REACTIONS (6)
  - ANAEMIA [None]
  - HYPOVOLAEMIA [None]
  - IMMUNE SYSTEM DISORDER [None]
  - INFECTION [None]
  - LYMPH NODE TUBERCULOSIS [None]
  - NO THERAPEUTIC RESPONSE [None]
